FAERS Safety Report 6896206-2 (Version None)
Quarter: 2010Q3

REPORT INFORMATION
  Report Type: 
  Country: None (occurrence: None)
  Receive Date: 20100802
  Receipt Date: 20100726
  Transmission Date: 20110219
  Serious: Yes (Congenital Anomaly)
  Sender: FDA-Public Use
  Company Number: A0872550A

PATIENT
  Sex: Male
  Weight: 1.4 kg

DRUGS (6)
  1. COMBIVIR [Suspect]
     Indication: ANTIVIRAL TREATMENT
     Dates: start: 20030508, end: 20030716
  2. VIRACEPT [Suspect]
     Indication: ANTIVIRAL TREATMENT
     Dates: start: 20030524, end: 20030716
  3. VIRAMUNE [Suspect]
     Indication: ANTIVIRAL TREATMENT
     Dates: start: 20030508, end: 20030518
  4. FERROUS SULFATE [Concomitant]
  5. FOLIC ACID [Concomitant]
  6. LORATADINE [Concomitant]

REACTIONS (3)
  - CONGENITAL FOOT MALFORMATION [None]
  - DRUG EXPOSURE DURING PREGNANCY [None]
  - PREMATURE BABY [None]
